FAERS Safety Report 8488857-9 (Version None)
Quarter: 2012Q3

REPORT INFORMATION
  Report Type: 
  Country: None (occurrence: None)
  Receive Date: 20120705
  Receipt Date: 20120628
  Transmission Date: 20120928
  Serious: Yes (Hospitalization)
  Sender: FDA-Public Use
  Company Number: RS-ROCHE-1082822

PATIENT
  Sex: Female

DRUGS (2)
  1. RITUXIMAB [Suspect]
     Route: 048
  2. RITUXIMAB [Suspect]
     Indication: RHEUMATOID ARTHRITIS
     Route: 041
     Dates: start: 20120417, end: 20120426

REACTIONS (1)
  - CEREBRAL DISORDER [None]
